FAERS Safety Report 6674720-2 (Version None)
Quarter: 2010Q2

REPORT INFORMATION
  Report Type: 
  Country: None (occurrence: None)
  Receive Date: 20100409
  Receipt Date: 20100115
  Transmission Date: 20101027
  Serious: Yes (Life-Threatening, Hospitalization)
  Sender: FDA-Public Use
  Company Number: FR-PFIZER INC-2010041711

PATIENT
  Age: 44 Year
  Sex: Female
  Weight: 90 kg

DRUGS (9)
  1. ATARAX [Suspect]
     Indication: MENTAL DISORDER
     Dosage: UNK
     Route: 048
     Dates: end: 20090124
  2. EFFEXOR [Suspect]
     Indication: MENTAL DISORDER
     Dosage: UNK
     Route: 048
     Dates: end: 20090124
  3. TERCIAN [Suspect]
     Indication: MENTAL DISORDER
     Dosage: 100 MG, UNK
     Route: 048
     Dates: end: 20090124
  4. TERCIAN [Suspect]
     Dosage: UNK
     Dates: start: 20090223, end: 20090303
  5. MEPRONIZINE [Suspect]
     Indication: MENTAL DISORDER
     Dosage: UNK
     Route: 048
     Dates: end: 20090124
  6. LOXAPAC [Suspect]
     Indication: MENTAL DISORDER
     Dosage: UNK
     Route: 048
     Dates: start: 20090201, end: 20090223
  7. ZOLPIDEM [Concomitant]
     Route: 048
  8. REMICADE [Concomitant]
     Indication: RHEUMATOID ARTHRITIS
     Dosage: 4 UNK, UNK
     Route: 042
     Dates: start: 20090119
  9. METHOTREXATE [Concomitant]
     Indication: RHEUMATOID ARTHRITIS
     Dosage: IRREGULAR INTAKE
     Dates: start: 20040101

REACTIONS (6)
  - ASCITES [None]
  - BLOOD CREATINE PHOSPHOKINASE INCREASED [None]
  - COLITIS ISCHAEMIC [None]
  - DRUG WITHDRAWAL SYNDROME [None]
  - RENAL FAILURE [None]
  - SEPTIC SHOCK [None]
